FAERS Safety Report 10632688 (Version 1)
Quarter: 2014Q4

REPORT INFORMATION
  Report Type: Spontaneous
  Country: US (occurrence: US)
  Receive Date: 20141205
  Receipt Date: 20141205
  Transmission Date: 20150529
  Serious: No
  Sender: FDA-Public Use
  Company Number: US-BRISTOL-MYERS SQUIBB COMPANY-21613468

PATIENT
  Age: 63 Year
  Sex: Female
  Weight: 92.97 kg

DRUGS (9)
  1. RISPERIDONE. [Concomitant]
     Active Substance: RISPERIDONE
  2. LISINOPRIL. [Concomitant]
     Active Substance: LISINOPRIL
  3. OLANZAPINE. [Concomitant]
     Active Substance: OLANZAPINE
  4. GLYBURIDE. [Concomitant]
     Active Substance: GLYBURIDE
  5. CITALOPRAM [Concomitant]
     Active Substance: CITALOPRAM HYDROBROMIDE
  6. SIMVASTATIN. [Concomitant]
     Active Substance: SIMVASTATIN
  7. HUMALOG [Concomitant]
     Active Substance: INSULIN LISPRO
  8. BYETTA [Suspect]
     Active Substance: EXENATIDE
     Indication: TYPE 2 DIABETES MELLITUS
     Route: 058
  9. DICYCLOMINE [Concomitant]
     Active Substance: DICYCLOMINE HYDROCHLORIDE

REACTIONS (2)
  - Product quality issue [Unknown]
  - Intentional product misuse [Unknown]
